FAERS Safety Report 12482619 (Version 3)
Quarter: 2016Q3

REPORT INFORMATION
  Report Type: Report from Study
  Country: US (occurrence: US)
  Receive Date: 20160620
  Receipt Date: 20160727
  Transmission Date: 20161109
  Serious: No
  Sender: FDA-Public Use
  Company Number: US-BIOGEN-2016BI00252803

PATIENT
  Sex: Male

DRUGS (2)
  1. DEPOKOT [Concomitant]
     Indication: PRODUCT USED FOR UNKNOWN INDICATION
     Route: 065
  2. TECFIDERA [Suspect]
     Active Substance: DIMETHYL FUMARATE
     Indication: MULTIPLE SCLEROSIS
     Route: 048
     Dates: start: 20131111, end: 20131116

REACTIONS (4)
  - Blood test abnormal [Not Recovered/Not Resolved]
  - Muscle spasticity [Unknown]
  - Aphasia [Recovered/Resolved]
  - Visual impairment [Unknown]
